FAERS Safety Report 10836913 (Version 1)
Quarter: 2015Q1

REPORT INFORMATION
  Report Type: Spontaneous
  Country: US (occurrence: None)
  Receive Date: 20150218
  Receipt Date: 20150218
  Transmission Date: 20150721
  Serious: Yes (Life-Threatening, Hospitalization)
  Sender: FDA-Public Use
  Company Number: NSR_01836_2015

PATIENT
  Age: 71 Year
  Sex: Female

DRUGS (1)
  1. BACLOFEN. [Suspect]
     Active Substance: BACLOFEN
     Indication: PRODUCT USED FOR UNKNOWN INDICATION
     Dosage: DF
     Route: 048

REACTIONS (15)
  - Ventricular hypokinesia [None]
  - Agitation [None]
  - Confusional state [None]
  - Hyperthermia [None]
  - Therapy cessation [None]
  - Urinary tract infection [None]
  - Muscle rigidity [None]
  - Lethargy [None]
  - Tremor [None]
  - Clonus [None]
  - Hypotension [None]
  - Drug withdrawal syndrome [None]
  - Drug administration error [None]
  - Ejection fraction decreased [None]
  - Troponin increased [None]
